FAERS Safety Report 11720626 (Version 1)
Quarter: 2015Q4

REPORT INFORMATION
  Report Type: Spontaneous
  Country: US (occurrence: US)
  Receive Date: 20151110
  Receipt Date: 20151110
  Transmission Date: 20160304
  Serious: Yes (Other)
  Sender: FDA-Public Use
  Company Number: US-BAYER-2015-463154

PATIENT
  Sex: Female

DRUGS (1)
  1. AFRIN NO DRIP ORIGINAL PUMP MIST [Suspect]
     Active Substance: OXYMETAZOLINE HYDROCHLORIDE
     Indication: ALLERGIC SINUSITIS
     Dosage: UNK, PRN

REACTIONS (3)
  - Product use issue [Unknown]
  - Product use issue [None]
  - Drug dependence [Unknown]

NARRATIVE: CASE EVENT DATE: 20151104
